FAERS Safety Report 17857281 (Version 1)
Quarter: 2020Q2

REPORT INFORMATION
  Report Type: Spontaneous
  Country: US (occurrence: US)
  Receive Date: 20200603
  Receipt Date: 20200603
  Transmission Date: 20200714
  Serious: No
  Sender: FDA-Public Use
  Company Number: US-TEIKOKU PHARMA USA-TPU2020-00243

PATIENT
  Sex: Female
  Weight: 63.56 kg

DRUGS (2)
  1. HYDROCODONE [Concomitant]
     Active Substance: HYDROCODONE
     Dosage: 10/325 MG UNKNOWN FREQUENCY
  2. LIDODERM [Suspect]
     Active Substance: LIDOCAINE
     Indication: NECK PAIN
     Dosage: ON FOR 12 HOURS /OFF FOR 12 HOURS
     Route: 061
     Dates: start: 2011, end: 2013

REACTIONS (3)
  - Drug ineffective [Unknown]
  - Insurance issue [Not Recovered/Not Resolved]
  - Pain [Not Recovered/Not Resolved]

NARRATIVE: CASE EVENT DATE: 2013
